FAERS Safety Report 7874850-3 (Version None)
Quarter: 2011Q4

REPORT INFORMATION
  Report Type: 
  Country: None (occurrence: None)
  Receive Date: 20111031
  Receipt Date: 20111024
  Transmission Date: 20120403
  Serious: Yes (Hospitalization)
  Sender: FDA-Public Use
  Company Number: DE-JNJFOC-20110909886

PATIENT
  Sex: Male
  Weight: 98 kg

DRUGS (4)
  1. USTEKINUMAB [Suspect]
     Indication: PSORIASIS
     Route: 058
     Dates: start: 20060703
  2. VOCADO [Concomitant]
     Dates: start: 20101101
  3. ALLOPURINOL [Concomitant]
     Dates: start: 20040901
  4. USTEKINUMAB [Suspect]
     Route: 058
     Dates: start: 20110304

REACTIONS (1)
  - MULTIPLE MYELOMA [None]
